FAERS Safety Report 6189499-0 (Version None)
Quarter: 2009Q2

REPORT INFORMATION
  Report Type: 
  Country: None (occurrence: None)
  Receive Date: 20090512
  Receipt Date: 20090512
  Transmission Date: 20091009
  Serious: No
  Sender: FDA-Public Use
  Company Number: None

PATIENT
  Age: 57 Year
  Sex: Female
  Weight: 77.1115 kg

DRUGS (1)
  1. REQUIP [Suspect]
     Indication: RESTLESS LEGS SYNDROME
     Dosage: 1 NIGHT/PRN
     Dates: start: 20070320, end: 20090418

REACTIONS (3)
  - COMPULSIVE SHOPPING [None]
  - FEELING ABNORMAL [None]
  - HYPERPHAGIA [None]
